FAERS Safety Report 7452274-0 (Version None)
Quarter: 2011Q2

REPORT INFORMATION
  Report Type: 
  Country: None (occurrence: None)
  Receive Date: 20110502
  Receipt Date: 20110428
  Transmission Date: 20111010
  Serious: Yes (Hospitalization)
  Sender: FDA-Public Use
  Company Number: US-B.I. PHARMACEUTICALS,INC./RIDGEFIELD-2011-BP-10054BP

PATIENT
  Sex: Female
  Weight: 64.86 kg

DRUGS (5)
  1. PRADAXA [Suspect]
     Indication: ATRIAL FIBRILLATION
  2. PLAQUENIL [Concomitant]
  3. LORAZEPAM [Concomitant]
  4. VICODIN [Concomitant]
  5. DYAZIDE [Concomitant]

REACTIONS (2)
  - GASTROINTESTINAL HAEMORRHAGE [None]
  - DIEULAFOY'S VASCULAR MALFORMATION [None]
